FAERS Safety Report 5915523-3 (Version None)
Quarter: 2008Q4

REPORT INFORMATION
  Report Type: 
  Country: None (occurrence: None)
  Receive Date: 20081010
  Receipt Date: 20080617
  Transmission Date: 20090506
  Serious: No
  Sender: FDA-Public Use
  Company Number: A0733420A

PATIENT
  Age: 53 Year
  Sex: Female

DRUGS (2)
  1. TYKERB [Suspect]
     Indication: BREAST CANCER
     Dosage: 5TAB PER DAY
     Route: 048
     Dates: start: 20080613, end: 20080614
  2. NO CONCURRENT MEDICATION [Concomitant]

REACTIONS (2)
  - MOVEMENT DISORDER [None]
  - MUSCLE SPASMS [None]
